FAERS Safety Report 9473814 (Version 1)
Quarter: 2013Q3

REPORT INFORMATION
  Report Type: Spontaneous
  Country: US (occurrence: US)
  Receive Date: 20130823
  Receipt Date: 20130823
  Transmission Date: 20140515
  Serious: No
  Sender: FDA-Public Use
  Company Number: US-BRISTOL-MYERS SQUIBB COMPANY-17013426

PATIENT
  Age: 50 Year
  Sex: Female

DRUGS (2)
  1. SPRYCEL [Suspect]
     Dosage: SPRYCEL 100MG TAB
     Dates: start: 20120928
  2. SPIRONOLACTONE [Suspect]

REACTIONS (6)
  - Headache [Recovering/Resolving]
  - Diarrhoea [Recovering/Resolving]
  - Nausea [Recovering/Resolving]
  - Eye pain [Recovering/Resolving]
  - Somnolence [Recovering/Resolving]
  - Hyperchlorhydria [Unknown]
